FAERS Safety Report 7639175-X (Version None)
Quarter: 2011Q3

REPORT INFORMATION
  Report Type: 
  Country: None (occurrence: None)
  Receive Date: 20110727
  Receipt Date: 20110722
  Transmission Date: 20111222
  Serious: Yes (Hospitalization, Other)
  Sender: FDA-Public Use
  Company Number: US-PFIZER INC-2011041919

PATIENT
  Sex: Male
  Weight: 97.506 kg

DRUGS (36)
  1. LYRICA [Suspect]
     Indication: HEAD INJURY
     Dosage: 50 MG, 2X/DAY
  2. EFFEXOR XR [Suspect]
     Indication: SPINAL FRACTURE
     Dosage: TWO 75 MG CAPSULES TWO TIMES DAILY
  3. EFFEXOR XR [Suspect]
     Indication: DEPRESSION
  4. NORVASC [Suspect]
     Indication: SPINAL FRACTURE
     Dosage: 10 MG, DAILY
     Route: 048
  5. NORVASC [Suspect]
     Indication: LOWER LIMB FRACTURE
  6. NORVASC [Suspect]
     Indication: NERVOUS SYSTEM DISORDER
  7. EFFEXOR XR [Suspect]
     Indication: ANXIETY
  8. LIPITOR [Suspect]
     Indication: SPINAL FRACTURE
     Dosage: 40 MG, 2X/DAY
  9. TOPROL-XL [Concomitant]
     Indication: HYPERTENSION
     Dosage: 50 MG, 2X/DAY
  10. LYRICA [Suspect]
     Indication: LOWER LIMB FRACTURE
     Dosage: 3 CAPSULES OF 150 MG DAILY
     Route: 048
  11. LYRICA [Suspect]
     Indication: ANXIETY
  12. LIPITOR [Suspect]
     Indication: HEAD INJURY
     Dosage: 80 MG, 2X/DAY
     Route: 048
  13. LIPITOR [Suspect]
     Indication: LOWER LIMB FRACTURE
     Dosage: 40 MG, DAILY
     Route: 048
  14. LIPITOR [Suspect]
     Indication: DEPRESSION
  15. WARFARIN SODIUM [Suspect]
     Indication: LOWER LIMB FRACTURE
     Dosage: 7.5 MG, 1X/DAY
  16. PROTONIX [Suspect]
     Indication: DEPRESSION
  17. WARFARIN SODIUM [Suspect]
     Indication: SPINAL FRACTURE
     Dosage: 10 MG, 1X/DAY
  18. EFFEXOR XR [Suspect]
     Indication: HEAD INJURY
     Dosage: 75 MG, 3X/DAY
     Route: 048
  19. PROTONIX [Suspect]
     Indication: ANXIETY
  20. NORVASC [Suspect]
     Indication: HEAD INJURY
     Dosage: 10 MG, 1X/DAY
  21. TRICOR [Concomitant]
     Indication: BLOOD CHOLESTEROL INCREASED
     Dosage: 145 MG, 1X/DAY
  22. LYRICA [Suspect]
     Indication: DEPRESSION
  23. EFFEXOR XR [Suspect]
     Indication: LOWER LIMB FRACTURE
     Dosage: 150 MG, 2X/DAY
     Route: 048
  24. EFFEXOR XR [Suspect]
     Indication: NERVOUS SYSTEM DISORDER
  25. LIPITOR [Suspect]
     Indication: ANXIETY
  26. PROTONIX [Suspect]
     Indication: LOWER LIMB FRACTURE
  27. NORVASC [Suspect]
     Indication: ANXIETY
  28. NORVASC [Suspect]
     Indication: DEPRESSION
  29. LYRICA [Suspect]
     Indication: SPINAL FRACTURE
     Dosage: 100 MG, 3X/DAY
  30. LYRICA [Suspect]
     Indication: NERVE INJURY
  31. PROTONIX [Suspect]
     Indication: HEAD INJURY
     Dosage: 40 MG, 1X/DAY
     Route: 048
  32. PROTONIX [Suspect]
     Indication: SPINAL FRACTURE
  33. LIPITOR [Suspect]
     Indication: NERVOUS SYSTEM DISORDER
  34. PROTONIX [Suspect]
     Indication: NERVE INJURY
  35. WARFARIN SODIUM [Suspect]
     Indication: HEAD INJURY
     Dosage: 11.25 MG, 1X/DAY
  36. WARFARIN SODIUM [Suspect]
     Dosage: 5 MG, 1X/DAY

REACTIONS (6)
  - GAIT DISTURBANCE [None]
  - OEDEMA PERIPHERAL [None]
  - HAEMORRHOIDAL HAEMORRHAGE [None]
  - THROMBOSIS [None]
  - RENAL DISORDER [None]
  - GASTROINTESTINAL DISORDER [None]
